FAERS Safety Report 7452175-8 (Version None)
Quarter: 2011Q2

REPORT INFORMATION
  Report Type: 
  Country: None (occurrence: None)
  Receive Date: 20110502
  Receipt Date: 20100902
  Transmission Date: 20111010
  Serious: No
  Sender: FDA-Public Use
  Company Number: US-ASTRAZENECA-2010SE41469

PATIENT
  Age: 84 Year
  Sex: Female
  Weight: 71.7 kg

DRUGS (8)
  1. VITAMIN C [Concomitant]
  2. METOPROLOL SUCCINATE [Suspect]
     Indication: HYPERTENSION
     Route: 048
  3. ACTOS [Concomitant]
  4. NEXIUM [Suspect]
     Indication: GASTROOESOPHAGEAL REFLUX DISEASE
     Route: 048
     Dates: start: 20040101
  5. CALCIUM [Concomitant]
  6. CREON [Concomitant]
  7. LISINOPRIL [Concomitant]
     Indication: HYPERTENSION
  8. VITAMIN D [Concomitant]

REACTIONS (3)
  - RHINORRHOEA [None]
  - EYE ALLERGY [None]
  - MUSCLE SPASMS [None]
